FAERS Safety Report 5842533-7 (Version None)
Quarter: 2008Q3

REPORT INFORMATION
  Report Type: 
  Country: None (occurrence: None)
  Receive Date: 20080812
  Receipt Date: 20080730
  Transmission Date: 20090109
  Serious: Yes (Other)
  Sender: FDA-Public Use
  Company Number: GB-GENENTECH-264334

PATIENT
  Sex: Male
  Weight: 64 kg

DRUGS (6)
  1. RANIBIZUMAB [Suspect]
     Indication: MACULAR DEGENERATION
     Dosage: 0.5 MG, UNK
     Route: 031
     Dates: start: 20070827
  2. VERTEPORFIN VS. PLACEBO [Suspect]
     Indication: MACULAR DEGENERATION
     Dosage: UNK
     Route: 042
     Dates: start: 20070827
  3. ASPIRIN [Concomitant]
     Indication: DRUG USE FOR UNKNOWN INDICATION
     Route: 065
  4. ATENOLOL [Concomitant]
     Indication: DRUG USE FOR UNKNOWN INDICATION
     Route: 065
  5. PERSANTINE [Concomitant]
     Indication: DRUG USE FOR UNKNOWN INDICATION
     Route: 065
  6. SIMVASTATIN [Concomitant]
     Indication: DRUG USE FOR UNKNOWN INDICATION
     Route: 065

REACTIONS (4)
  - ATRIAL FLUTTER [None]
  - CEREBROVASCULAR ACCIDENT [None]
  - FALL [None]
  - SKIN LACERATION [None]
